FAERS Safety Report 6681186-5 (Version None)
Quarter: 2010Q2

REPORT INFORMATION
  Report Type: 
  Country: None (occurrence: None)
  Receive Date: 20100414
  Receipt Date: 20100408
  Transmission Date: 20101027
  Serious: Yes (Death, Other)
  Sender: FDA-Public Use
  Company Number: TR-ELI_LILLY_AND_COMPANY-TR201004001963

PATIENT
  Age: 81 Year
  Sex: Male

DRUGS (2)
  1. HUMULIN 70/30 [Suspect]
     Indication: DIABETES MELLITUS
     Dosage: 14 IU, EACH MORNING
     Route: 058
     Dates: start: 20070101
  2. HUMULIN 70/30 [Suspect]
     Dosage: 15 IU, EACH EVENING
     Route: 058
     Dates: start: 20070101

REACTIONS (1)
  - PANCREATIC NEOPLASM [None]
